FAERS Safety Report 6698056-9 (Version None)
Quarter: 2010Q2

REPORT INFORMATION
  Report Type: 
  Country: None (occurrence: None)
  Receive Date: 20100427
  Receipt Date: 20100415
  Transmission Date: 20101027
  Serious: No
  Sender: FDA-Public Use
  Company Number: US-JNJFOC-20100404611

PATIENT
  Sex: Female
  Weight: 78.02 kg

DRUGS (5)
  1. FENTANYL CITRATE [Suspect]
     Indication: OSTEOPOROSIS
     Dosage: NDC# 0781-7242-55
     Route: 062
  2. FENTANYL CITRATE [Suspect]
     Route: 062
  3. SERZONE [Concomitant]
     Indication: DEPRESSION
     Route: 048
  4. KLONOPIN [Concomitant]
     Indication: PANIC ATTACK
     Route: 048
  5. ESTROTEST [Concomitant]
     Indication: HORMONE THERAPY
     Route: 048

REACTIONS (3)
  - DRUG INEFFECTIVE [None]
  - THERAPEUTIC RESPONSE DELAYED [None]
  - WRONG TECHNIQUE IN DRUG USAGE PROCESS [None]
